FAERS Safety Report 4944586-7 (Version None)
Quarter: 2006Q1

REPORT INFORMATION
  Report Type: 
  Country: None (occurrence: None)
  Receive Date: 20060315
  Receipt Date: 20051017
  Transmission Date: 20060701
  Serious: Yes (Death, Other)
  Sender: FDA-Public Use
  Company Number: PHNR2005AU01511

PATIENT
  Age: 72 Year
  Sex: Female

DRUGS (2)
  1. PAMIDRONATE DISODIUM [Suspect]
     Indication: MULTIPLE MYELOMA
     Dosage: 90 MG
     Route: 042
     Dates: end: 20050101
  2. THALIDOMIDE [Concomitant]
     Dosage: 100 MG,DAILY

REACTIONS (14)
  - ABSCESS DRAINAGE [None]
  - ABSCESS JAW [None]
  - BONE DISORDER [None]
  - DENTAL NECROSIS [None]
  - ENDODONTIC PROCEDURE [None]
  - FISTULA [None]
  - IMPAIRED HEALING [None]
  - LOCALISED INFECTION [None]
  - MALIGNANT NEOPLASM PROGRESSION [None]
  - OSTEONECROSIS [None]
  - PERIODONTITIS [None]
  - PULPITIS DENTAL [None]
  - SINUSITIS [None]
  - TOOTH EXTRACTION [None]
